FAERS Safety Report 7563769-3 (Version None)
Quarter: 2011Q2

REPORT INFORMATION
  Report Type: 
  Country: None (occurrence: None)
  Receive Date: 20110621
  Receipt Date: 20110621
  Transmission Date: 20111010
  Serious: Yes (Other)
  Sender: FDA-Public Use
  Company Number: None

PATIENT
  Age: 53 Year
  Sex: Female
  Weight: 56.246 kg

DRUGS (2)
  1. METOCLOPRAMIDE [Suspect]
     Indication: PROPHYLAXIS OF NAUSEA AND VOMITING
     Dosage: 10 MG PO
     Route: 048
     Dates: start: 20110615, end: 20110617
  2. METOCLOPRAMIDE [Suspect]
     Indication: NAUSEA
     Dosage: 10 MG PO
     Route: 048
     Dates: start: 20110615, end: 20110617

REACTIONS (1)
  - NO ADVERSE EVENT [None]
